FAERS Safety Report 11246693 (Version 2)
Quarter: 2015Q3

REPORT INFORMATION
  Report Type: Spontaneous
  Country: US (occurrence: None)
  Receive Date: 20150706
  Receipt Date: 20150710
  Transmission Date: 20151125
  Serious: Yes (Other)
  Sender: FDA-Public Use
  Company Number: US-002137

PATIENT
  Age: 64 Year
  Sex: Female

DRUGS (1)
  1. PARATHYROID HORMONE [Suspect]
     Active Substance: PARATHYROID HORMONE
     Indication: HYPOPARATHYROIDISM
     Route: 058
     Dates: start: 201505, end: 201506

REACTIONS (3)
  - Swollen tongue [None]
  - Dysphonia [None]
  - Pharyngeal oedema [None]

NARRATIVE: CASE EVENT DATE: 201506
